FAERS Safety Report 7394035-7 (Version None)
Quarter: 2011Q2

REPORT INFORMATION
  Report Type: 
  Country: None (occurrence: None)
  Receive Date: 20110405
  Receipt Date: 20110330
  Transmission Date: 20111010
  Serious: Yes (Other)
  Sender: FDA-Public Use
  Company Number: SK-BRISTOL-MYERS SQUIBB COMPANY-15145717

PATIENT
  Age: 29 Year
  Sex: Female

DRUGS (1)
  1. ABILIFY [Suspect]
     Indication: SCHIZOPHRENIA
     Dosage: STARTED AS 10MG DAILY ON 13APR10 AND INCREASED TO 15MG FROM MAY2010 .
     Route: 048
     Dates: start: 20100413

REACTIONS (3)
  - LIVE BIRTH [None]
  - PREGNANCY [None]
  - CAESAREAN SECTION [None]
